FAERS Safety Report 5941895-X (Version None)
Quarter: 2008Q4

REPORT INFORMATION
  Report Type: 
  Country: None (occurrence: None)
  Receive Date: 20081031
  Receipt Date: 20081017
  Transmission Date: 20090506
  Serious: Yes (Death)
  Sender: FDA-Public Use
  Company Number: 2008S1018931

PATIENT
  Age: 73 Year
  Sex: Male
  Weight: 62.5964 kg

DRUGS (1)
  1. FENTANYL TRANSDERMAL SYSTEM [Suspect]
     Indication: CANCER PAIN
     Dosage: 25 UG;  EVERY HOUR; TRANSDERMAL
     Route: 062
     Dates: start: 20081003, end: 20081010

REACTIONS (5)
  - DEHYDRATION [None]
  - DISEASE PROGRESSION [None]
  - DRUG EFFECT INCREASED [None]
  - DYSPNOEA [None]
  - PAIN [None]
